FAERS Safety Report 5361117-0 (Version None)
Quarter: 2007Q2

REPORT INFORMATION
  Report Type: 
  Country: None (occurrence: None)
  Receive Date: 20070614
  Receipt Date: 20070607
  Transmission Date: 20071010
  Serious: Yes (Hospitalization)
  Sender: FDA-Public Use
  Company Number: 2007BI012454

PATIENT
  Age: 65 Year
  Sex: Female

DRUGS (2)
  1. NATALIZUMAB [Suspect]
     Indication: MULTIPLE SCLEROSIS
     Dosage: 300 MG;QW; IV
     Route: 042
     Dates: start: 20061215
  2. AVONEX [Concomitant]

REACTIONS (4)
  - CONDITION AGGRAVATED [None]
  - FALL [None]
  - HEAD INJURY [None]
  - MULTIPLE SCLEROSIS [None]
